FAERS Safety Report 10197421 (Version 1)
Quarter: 2014Q2

REPORT INFORMATION
  Report Type: Spontaneous
  Country: US (occurrence: None)
  Receive Date: 20140523
  Receipt Date: 20140523
  Transmission Date: 20141212
  Serious: Yes (Life-Threatening, Other)
  Sender: FDA-Public Use
  Company Number: None

PATIENT
  Age: 63 Year
  Sex: Female
  Weight: 58.97 kg

DRUGS (6)
  1. PROLIA [Suspect]
     Indication: OSTEOPOROSIS
     Dosage: 1 INJECTION, EVERY 6 MONTHS, INJECTION
     Route: 050
  2. SYNTHROID [Concomitant]
  3. MULOTIVITAMIN [Concomitant]
  4. VITMAIN D [Concomitant]
  5. CALCIUM [Concomitant]
  6. ASPIRIN [Concomitant]

REACTIONS (4)
  - Gastrointestinal motility disorder [None]
  - Infrequent bowel movements [None]
  - Arthralgia [None]
  - Back pain [None]
